FAERS Safety Report 9089934 (Version 1)
Quarter: 2013Q1

REPORT INFORMATION
  Report Type: Report from Study
  Country: US (occurrence: US)
  Receive Date: 20130201
  Receipt Date: 20130201
  Transmission Date: 20140127
  Serious: No
  Sender: FDA-Public Use
  Company Number: US-ABBOTT-12P-163-1019555-00

PATIENT
  Sex: Female
  Weight: 61.29 kg

DRUGS (11)
  1. HUMIRA [Suspect]
     Indication: PSORIATIC ARTHROPATHY
  2. PREDNISONE [Concomitant]
     Indication: PSORIATIC ARTHROPATHY
  3. SULFASALAZINE [Concomitant]
     Indication: PSORIATIC ARTHROPATHY
  4. KETOCONAZOLE [Concomitant]
     Indication: PRODUCT USED FOR UNKNOWN INDICATION
  5. MULTIVITAMIN [Concomitant]
     Indication: VITAMIN SUPPLEMENTATION
  6. VITAMIN C [Concomitant]
     Indication: VITAMIN SUPPLEMENTATION
  7. VITAMIN D [Concomitant]
     Indication: VITAMIN SUPPLEMENTATION
  8. CALCIUM [Concomitant]
     Indication: SUPPLEMENTATION THERAPY
  9. B VITAMIN COMP [Concomitant]
     Indication: VITAMIN SUPPLEMENTATION
  10. ZINC [Concomitant]
     Indication: SUPPLEMENTATION THERAPY
  11. PROBIOTICS [Concomitant]
     Indication: SUPPLEMENTATION THERAPY

REACTIONS (2)
  - Metrorrhagia [Not Recovered/Not Resolved]
  - Metrorrhagia [Recovered/Resolved]
